FAERS Safety Report 8399711-5 (Version None)
Quarter: 2012Q1

REPORT INFORMATION
  Report Type: 
  Country: None (occurrence: None)
  Receive Date: 20120323
  Receipt Date: 20110712
  Transmission Date: 20120608
  Serious: Yes (Other)
  Sender: FDA-Public Use
  Company Number: 163-21880-11072423

PATIENT
  Age: 71 Year
  Sex: Female
  Weight: 57.6068 kg

DRUGS (11)
  1. COMPAZINE [Concomitant]
  2. FLEXERIL [Concomitant]
  3. HEMAX (ALL OTHER THERAPEUTIC PRODUCTS) [Concomitant]
  4. ADVAIR HFA [Concomitant]
  5. REVLIMID [Suspect]
     Indication: MYELODYSPLASTIC SYNDROME
     Dosage: 5 MG, 1 IN 1 D, PO ; 10 MG, QD X 21 DAYS, PO
     Route: 048
     Dates: start: 20091101, end: 20090101
  6. REVLIMID [Suspect]
     Indication: MYELODYSPLASTIC SYNDROME
     Dosage: 5 MG, 1 IN 1 D, PO ; 10 MG, QD X 21 DAYS, PO
     Route: 048
     Dates: start: 20090901
  7. CLARITIN [Concomitant]
  8. HYDREA [Concomitant]
  9. RANITIDINE HYDROCHLORIDE [Concomitant]
  10. FOLIC ACID [Concomitant]
  11. ANTIVERT [Concomitant]

REACTIONS (2)
  - HAEMOGLOBIN ABNORMAL [None]
  - THERAPY RESPONDER [None]
